FAERS Safety Report 10597479 (Version 1)
Quarter: 2014Q4

REPORT INFORMATION
  Report Type: Spontaneous
  Country: US (occurrence: None)
  Receive Date: 20141120
  Receipt Date: 20141120
  Transmission Date: 20150529
  Serious: No
  Sender: FDA-Public Use
  Company Number: None

PATIENT
  Age: 68 Year
  Sex: Female
  Weight: 92 kg

DRUGS (1)
  1. CIPROFLOXACIN. [Suspect]
     Active Substance: CIPROFLOXACIN
     Indication: URINARY TRACT INFECTION
     Dates: start: 20141114, end: 20141114

REACTIONS (5)
  - Urticaria [None]
  - Rash [None]
  - Dyspnoea [None]
  - Anxiety [None]
  - Pruritus [None]

NARRATIVE: CASE EVENT DATE: 20141114
